FAERS Safety Report 17430595 (Version 6)
Quarter: 2020Q3

REPORT INFORMATION
  Report Type: Spontaneous
  Country: BR (occurrence: BR)
  Receive Date: 20200218
  Receipt Date: 20200903
  Transmission Date: 20201102
  Serious: Yes (Other)
  Sender: FDA-Public Use
  Company Number: BR-PFIZER INC-2020071517

PATIENT
  Age: 85 Year
  Sex: Female
  Weight: 54 kg

DRUGS (2)
  1. LORAX (LORAZEPAM) [Suspect]
     Active Substance: LORAZEPAM
     Indication: ANXIOLYTIC THERAPY
     Dosage: 2 MG, 1X/DAY (AT BED TIME)
     Route: 048
     Dates: start: 1975
  2. LORAX (LORAZEPAM) [Suspect]
     Active Substance: LORAZEPAM
     Dosage: 2 MG, 2X/DAY (1 TABLET IN THE MORNING, 1 TABLET AT BED TIME)
     Route: 048
     Dates: start: 2000, end: 2019

REACTIONS (6)
  - Nightmare [Recovered/Resolved]
  - Drug withdrawal syndrome [Recovered/Resolved]
  - Hypertension [Recovered/Resolved]
  - Tremor [Not Recovered/Not Resolved]
  - Drug dependence [Not Recovered/Not Resolved]
  - Cerebral ischaemia [Not Recovered/Not Resolved]
